FAERS Safety Report 9255322 (Version 1)
Quarter: 2013Q2

REPORT INFORMATION
  Report Type: Spontaneous
  Country: FR (occurrence: FR)
  Receive Date: 20130425
  Receipt Date: 20130425
  Transmission Date: 20140414
  Serious: Yes (Hospitalization)
  Sender: FDA-Public Use
  Company Number: FR-009507513-1304FRA008286

PATIENT
  Age: 55 Year
  Sex: Male

DRUGS (11)
  1. STROMECTOL [Suspect]
     Indication: ACARODERMATITIS
     Dosage: UNK
     Route: 048
     Dates: start: 20130219, end: 20130219
  2. METFORMIN [Interacting]
     Indication: TYPE 2 DIABETES MELLITUS
     Dosage: UNK
     Dates: end: 20130222
  3. SPREGAL [Interacting]
     Indication: ACARODERMATITIS
     Dosage: UNK
     Route: 003
     Dates: start: 20130219
  4. GLIBENCLAMIDE [Concomitant]
  5. TAHOR [Concomitant]
  6. EUPRESSYL [Concomitant]
  7. JANUMET [Concomitant]
  8. INEXIUM [Concomitant]
  9. MONO-TILDIEM LP [Concomitant]
  10. FORTZAAR [Concomitant]
  11. PLAVIX [Concomitant]

REACTIONS (3)
  - Renal failure acute [Recovered/Resolved]
  - Blood lactic acid increased [Recovered/Resolved]
  - Hyperkalaemia [Recovered/Resolved]
